FAERS Safety Report 20784522 (Version 4)
Quarter: 2022Q2

REPORT INFORMATION
  Report Type: Spontaneous
  Country: US (occurrence: US)
  Receive Date: 20220504
  Receipt Date: 20220601
  Transmission Date: 20220721
  Serious: No
  Sender: FDA-Public Use
  Company Number: US-PFIZER INC-202200649281

PATIENT
  Age: 54 Year
  Sex: Female
  Weight: 52.154 kg

DRUGS (6)
  1. XANAX [Suspect]
     Active Substance: ALPRAZOLAM
     Indication: Post-traumatic stress disorder
     Dosage: 0.5 MG, 3X/DAY
     Dates: start: 1997
  2. XANAX [Suspect]
     Active Substance: ALPRAZOLAM
     Indication: Panic disorder
     Dosage: 1 MG, 4X/DAY
     Dates: start: 201806
  3. XANAX [Suspect]
     Active Substance: ALPRAZOLAM
     Indication: Agoraphobia
  4. XANAX [Suspect]
     Active Substance: ALPRAZOLAM
     Indication: Anxiety
  5. XANAX [Suspect]
     Active Substance: ALPRAZOLAM
     Indication: Major depression
  6. ZOLOFT [Suspect]
     Active Substance: SERTRALINE HYDROCHLORIDE
     Dosage: UNK
     Dates: start: 1997

REACTIONS (3)
  - Drug withdrawal syndrome [Not Recovered/Not Resolved]
  - Palpitations [Unknown]
  - Inappropriate schedule of product administration [Unknown]

NARRATIVE: CASE EVENT DATE: 20220310
